FAERS Safety Report 5975676-8 (Version None)
Quarter: 2008Q4

REPORT INFORMATION
  Report Type: 
  Country: None (occurrence: None)
  Receive Date: 20081202
  Receipt Date: 20081121
  Transmission Date: 20090506
  Serious: Yes (Other)
  Sender: FDA-Public Use
  Company Number: PHHY2008JP26934

PATIENT
  Age: 59 Year
  Sex: Male

DRUGS (4)
  1. DIOVAN [Suspect]
     Indication: HYPERTENSION
     Dosage: 120 MG, DAILY
     Route: 048
     Dates: start: 20081021, end: 20081024
  2. RABEPRAZOLE SODIUM [Concomitant]
     Dosage: UNK
     Route: 048
  3. GASMOTIN [Concomitant]
     Dosage: UNK
     Route: 048
  4. ZYLORIC ^FRESENIUS^ [Concomitant]
     Dosage: UNK
     Route: 048

REACTIONS (1)
  - BRADYCARDIA [None]
